FAERS Safety Report 6434553-9 (Version None)
Quarter: 2009Q4

REPORT INFORMATION
  Report Type: 
  Country: None (occurrence: None)
  Receive Date: 20091110
  Receipt Date: 20091103
  Transmission Date: 20100525
  Serious: Yes (Hospitalization)
  Sender: FDA-Public Use
  Company Number: A0760274A

PATIENT
  Age: 39 Year
  Sex: Male

DRUGS (3)
  1. AVANDIA [Suspect]
     Dosage: 1MG TWICE PER DAY
     Route: 048
     Dates: start: 20050506, end: 20070403
  2. AVANDAMET [Suspect]
     Indication: DIABETES MELLITUS
     Route: 048
     Dates: start: 20030317, end: 20050209
  3. METFORMIN HCL [Concomitant]

REACTIONS (1)
  - MYOCARDIAL INFARCTION [None]
